FAERS Safety Report 9506024 (Version 1)
Quarter: 2013Q1

REPORT INFORMATION
  Report Type: Spontaneous
  Country: US (occurrence: None)
  Receive Date: 20130305
  Receipt Date: 20130305
  Transmission Date: 20140127
  Serious: Yes (Hospitalization)
  Sender: FDA-Public Use
  Company Number: 163-21880-12050261

PATIENT
  Age: 70 Year
  Sex: Male

DRUGS (1)
  1. REVLIMID(LENALIDOMIDE)(10 MILLIGRAM, CAPSULES) [Suspect]
     Indication: PLASMA CELL MYELOMA
     Route: 048
     Dates: start: 201107

REACTIONS (3)
  - Pneumonia [None]
  - Cough [None]
  - Dyspnoea [None]
